FAERS Safety Report 6446290-5 (Version None)
Quarter: 2009Q4

REPORT INFORMATION
  Report Type: 
  Country: None (occurrence: None)
  Receive Date: 20091119
  Receipt Date: 20091111
  Transmission Date: 20100525
  Serious: Yes (Life-Threatening)
  Sender: FDA-Public Use
  Company Number: JP-ROCHE-669127

PATIENT
  Age: 16 Year
  Sex: Male

DRUGS (2)
  1. TAMIFLU [Suspect]
     Route: 048
  2. AMANTADINE HYDROCHLORIDE [Suspect]
     Route: 048

REACTIONS (1)
  - HEPATITIS FULMINANT [None]
